FAERS Safety Report 18572859 (Version 1)
Quarter: 2020Q4

REPORT INFORMATION
  Report Type: Spontaneous
  Country: US (occurrence: US)
  Receive Date: 20201202
  Receipt Date: 20201202
  Transmission Date: 20210114
  Serious: No
  Sender: FDA-Public Use
  Company Number: US-VISTAPHARM, INC.-VER202008-001448

PATIENT
  Age: 76 Year
  Sex: Male

DRUGS (1)
  1. METHADONE HYDROCHLORIDE ORAL CONCENTRATE USP CII 10 MG/ML [Suspect]
     Active Substance: METHADONE HYDROCHLORIDE
     Indication: PRODUCT USED FOR UNKNOWN INDICATION
     Dosage: 50 MG
     Route: 048

REACTIONS (3)
  - Nasopharyngitis [Unknown]
  - Drug withdrawal syndrome [Recovered/Resolved]
  - Drug ineffective [Recovered/Resolved]
